FAERS Safety Report 15311662 (Version 1)
Quarter: 2018Q3

REPORT INFORMATION
  Report Type: Spontaneous
  Country: US (occurrence: US)
  Receive Date: 20180823
  Receipt Date: 20180823
  Transmission Date: 20181010
  Serious: No
  Sender: FDA-Public Use
  Company Number: US-COLLEGIUM PHARMACEUTICAL, INC.-2018CGM00208

PATIENT
  Sex: Male
  Weight: 104.31 kg

DRUGS (7)
  1. TESTOSTERONE RUB [Concomitant]
  2. METHADONE [Concomitant]
     Active Substance: METHADONE HYDROCHLORIDE
  3. UNSPECIFIED STOOL SOFTENER [Concomitant]
  4. SIMVASTATIN. [Concomitant]
     Active Substance: SIMVASTATIN
  5. XTAMPZA ER [Suspect]
     Active Substance: OXYCODONE
     Indication: PAIN
     Dosage: 36 MG, 2X/DAY
     Route: 048
     Dates: start: 201805
  6. ^SIERBETA^ [Concomitant]
  7. ^OXY^ [Concomitant]

REACTIONS (5)
  - Drug effect delayed [Not Recovered/Not Resolved]
  - Product substitution issue [Not Recovered/Not Resolved]
  - Muscle spasms [Not Recovered/Not Resolved]
  - Drug effect incomplete [Not Recovered/Not Resolved]
  - Breakthrough pain [Not Recovered/Not Resolved]

NARRATIVE: CASE EVENT DATE: 2018
